FAERS Safety Report 8030047-8 (Version None)
Quarter: 2011Q4

REPORT INFORMATION
  Report Type: 
  Country: None (occurrence: None)
  Receive Date: 20111130
  Receipt Date: 20110829
  Transmission Date: 20120403
  Serious: Yes (Other)
  Sender: FDA-Public Use
  Company Number: US201107001488

PATIENT
  Sex: Male
  Weight: 136.1 kg

DRUGS (17)
  1. BYETTA [Suspect]
     Indication: TYPE 2 DIABETES MELLITUS
     Dosage: 5 UG, BID, SUBCUTANEOUS, 10  UG, BID, SUBCUTANEOUS
     Route: 058
     Dates: start: 20081223, end: 20110621
  2. BYETTA [Suspect]
     Indication: TYPE 2 DIABETES MELLITUS
     Dosage: 5 UG, BID, SUBCUTANEOUS, 10  UG, BID, SUBCUTANEOUS
     Route: 058
     Dates: start: 20081121, end: 20081223
  3. PROTONIX [Concomitant]
  4. METFORMIN HCL [Concomitant]
  5. ASPIRIN [Concomitant]
  6. TRICOR [Concomitant]
  7. NEURONTIN [Concomitant]
  8. ALTACE [Concomitant]
  9. ZYRTEC [Concomitant]
  10. HYDROCHLOROTHIAZIDE [Concomitant]
  11. ALLOPURINOL [Concomitant]
  12. NIASPAN [Concomitant]
  13. FOLIC ACID [Concomitant]
  14. METOPROLOL SUCCINATE [Concomitant]
  15. NITROQUICK (GLYCERYL TRINITRATE) [Concomitant]
  16. ZETIA [Concomitant]
  17. NASONEX [Concomitant]

REACTIONS (2)
  - PANCREATITIS [None]
  - WEIGHT DECREASED [None]
